FAERS Safety Report 16447102 (Version 1)
Quarter: 2019Q2

REPORT INFORMATION
  Report Type: Spontaneous
  Country: US (occurrence: US)
  Receive Date: 20190618
  Receipt Date: 20190618
  Transmission Date: 20190711
  Serious: Yes (Other)
  Sender: FDA-Public Use
  Company Number: US-PFIZER INC-2019241080

PATIENT
  Age: 49 Year
  Sex: Male
  Weight: 81.65 kg

DRUGS (2)
  1. FIBERCON [Suspect]
     Active Substance: CALCIUM POLYCARBOPHIL
     Dosage: 2 DF, (TAKE ONE CAPLET THE FIRST WEEK AND THE TAKE 2 CAPLETS THE SECOND WEEK)
  2. FIBERCON [Suspect]
     Active Substance: CALCIUM POLYCARBOPHIL
     Dosage: 1 DF, (TAKE ONE CAPLET THE FIRST WEEK AND THE TAKE 2 CAPLETS THE SECOND WEEK)

REACTIONS (1)
  - Choking [Unknown]

NARRATIVE: CASE EVENT DATE: 20190602
